FAERS Safety Report 18615032 (Version 2)
Quarter: 2020Q4

REPORT INFORMATION
  Report Type: Spontaneous
  Country: PK (occurrence: PK)
  Receive Date: 20201215
  Receipt Date: 20201223
  Transmission Date: 20210114
  Serious: Yes (Death)
  Sender: FDA-Public Use
  Company Number: PK-ROCHE-2730327

PATIENT
  Age: 70 Year
  Sex: Female
  Weight: 65 kg

DRUGS (2)
  1. ACTEMRA [Suspect]
     Active Substance: TOCILIZUMAB
     Indication: COVID-19
     Dosage: FREQUENCY: STAT 2 DOSES, 1ST DOSE
     Route: 042
     Dates: start: 20201206, end: 20201207
  2. ACTEMRA [Suspect]
     Active Substance: TOCILIZUMAB
     Dosage: FREQUENCY: STAT 2 DOSES, 2ND DOSE
     Route: 042
     Dates: start: 20201207

REACTIONS (4)
  - Intentional product use issue [Unknown]
  - COVID-19 [Fatal]
  - Respiratory arrest [Fatal]
  - Off label use [Unknown]
